FAERS Safety Report 17230599 (Version 13)
Quarter: 2021Q2

REPORT INFORMATION
  Report Type: Report from Study
  Country: TR (occurrence: TR)
  Receive Date: 20200103
  Receipt Date: 20210625
  Transmission Date: 20210716
  Serious: Yes (Other)
  Sender: FDA-Public Use
  Company Number: NVSC2019TR078424

PATIENT
  Age: 69 Year
  Sex: Male
  Weight: 81.1 kg

DRUGS (20)
  1. CANAKINUMAB. [Suspect]
     Active Substance: CANAKINUMAB
     Indication: NON-SMALL CELL LUNG CANCER
     Dosage: 200 MG, Q3W
     Route: 058
     Dates: start: 20191118
  2. LUSTRAL [Concomitant]
     Active Substance: SERTRALINE HYDROCHLORIDE
     Indication: DEPRESSION
     Dosage: UNK
     Route: 065
     Dates: start: 20180918, end: 20200212
  3. IPRAVENT (IPRATROPIUM BROMIDE) [Concomitant]
     Indication: CARDIAC OPERATION
     Route: 065
     Dates: start: 20191225
  4. BRILINTA [Concomitant]
     Active Substance: TICAGRELOR
     Indication: CARDIAC OPERATION
     Dosage: UNK
     Route: 065
     Dates: start: 20190408, end: 20200212
  5. LANSOR [Concomitant]
     Active Substance: LANSOPRAZOLE
     Indication: PROPHYLAXIS
     Dosage: UNK
     Route: 065
     Dates: start: 20070101, end: 20200210
  6. ATACAND [Concomitant]
     Active Substance: CANDESARTAN CILEXETIL
     Indication: HYPERTENSION
     Dosage: UNK
     Route: 065
     Dates: start: 20070101, end: 20200212
  7. IPRAVENT (IPRATROPIUM BROMIDE) [Concomitant]
     Indication: DEMENTIA
     Route: 065
     Dates: start: 20130101
  8. QUET [Concomitant]
     Active Substance: QUETIAPINE FUMARATE
     Indication: DEMENTIA
     Dosage: UNK
     Route: 065
     Dates: start: 20130101
  9. VASTAREL [Concomitant]
     Active Substance: TRIMETAZIDINE DIHYDROCHLORIDE
     Indication: CARDIAC OPERATION
     Dosage: UNK
     Route: 065
     Dates: start: 20190311, end: 20200210
  10. DILTIZEM [Concomitant]
     Indication: CARDIAC OPERATION
  11. IPRAVENT (IPRATROPIUM BROMIDE) [Concomitant]
     Indication: CHRONIC OBSTRUCTIVE PULMONARY DISEASE
     Route: 065
     Dates: start: 20190801, end: 20200210
  12. IPRAVENT [Concomitant]
     Indication: CHRONIC OBSTRUCTIVE PULMONARY DISEASE
     Dosage: UNK
     Route: 065
     Dates: start: 20190410
  13. NAPROSYN [Concomitant]
     Active Substance: NAPROXEN
     Indication: BONE PAIN
     Dosage: UNK
     Route: 065
     Dates: start: 20190801, end: 20200210
  14. PEMBROLIZUMAB. [Suspect]
     Active Substance: PEMBROLIZUMAB
     Indication: NON-SMALL CELL LUNG CANCER
     Dosage: 200 MG, Q3W
     Route: 065
     Dates: start: 20191118
  15. ANORO ELLIPTA [Concomitant]
     Active Substance: UMECLIDINIUM BROMIDE\VILANTEROL TRIFENATATE
     Indication: CHRONIC OBSTRUCTIVE PULMONARY DISEASE
     Dosage: UNK
     Route: 065
     Dates: start: 20190410
  16. MEXIA [Concomitant]
     Indication: DEMENTIA
     Dosage: UNK
     Route: 065
     Dates: start: 20130101
  17. DILTIZEM [Concomitant]
     Indication: CARDIAC OPERATION
     Dosage: UNK
     Route: 065
     Dates: start: 20070101, end: 20200212
  18. IPRAVENT (IPRATROPIUM BROMIDE) [Concomitant]
     Indication: BONE PAIN
     Route: 065
     Dates: start: 20190311, end: 20200210
  19. DERMENT [Concomitant]
     Indication: DEMENTIA
     Dosage: UNK
     Route: 065
     Dates: start: 20130101
  20. IPRAVENT (IPRATROPIUM BROMIDE) [Concomitant]
     Indication: PNEUMONIA BACTERIAL
     Dosage: UNK
     Route: 065
     Dates: start: 20190410, end: 20200413

REACTIONS (1)
  - Immune-mediated hepatitis [Recovered/Resolved]

NARRATIVE: CASE EVENT DATE: 20191218
